FAERS Safety Report 9495421 (Version 5)
Quarter: 2014Q2

REPORT INFORMATION
  Report Type: Spontaneous
  Country: US (occurrence: US)
  Receive Date: 20130903
  Receipt Date: 20140613
  Transmission Date: 20141212
  Serious: Yes (Other)
  Sender: FDA-Public Use
  Company Number: US-PFIZER INC-2013251328

PATIENT
  Age: 46 Year
  Sex: Female

DRUGS (3)
  1. XELJANZ [Suspect]
     Indication: RHEUMATOID ARTHRITIS
     Dosage: 5 MG, 2X/DAY
     Route: 048
     Dates: start: 201305, end: 201311
  2. XELJANZ [Suspect]
  3. XELJANZ [Suspect]
     Dosage: 5 MG, 2X/DAY
     Route: 048
     Dates: start: 201305

REACTIONS (5)
  - Rheumatoid arthritis [Recovering/Resolving]
  - Sinus disorder [Unknown]
  - Rhinorrhoea [Unknown]
  - Cough [Unknown]
  - Nasopharyngitis [Unknown]
